FAERS Safety Report 9598315 (Version 1)
Quarter: 2013Q4

REPORT INFORMATION
  Report Type: Spontaneous
  Country: US (occurrence: US)
  Receive Date: 20131004
  Receipt Date: 20131004
  Transmission Date: 20140711
  Serious: No
  Sender: FDA-Public Use
  Company Number: US-AMGEN-USASP2013023054

PATIENT
  Age: 38 Year
  Sex: Male
  Weight: 90.7 kg

DRUGS (8)
  1. ENBREL [Suspect]
     Indication: PRODUCT USED FOR UNKNOWN INDICATION
     Dosage: 50 MG, QWK
     Route: 058
     Dates: end: 201303
  2. PROTONIX [Concomitant]
     Dosage: 20 MG, UNK
  3. PREDNISONE [Concomitant]
     Dosage: 10 MG, UNK
  4. ZYRTEC [Concomitant]
     Dosage: 10 MG, UNK
  5. VICODIN [Concomitant]
     Dosage: 5-500 MG
  6. ACTONEL [Concomitant]
     Dosage: 30 MG, UNK
  7. ASACOL [Concomitant]
     Dosage: 400 MG, UNK
  8. SKELAXIN                           /00611501/ [Concomitant]
     Dosage: 800 MG, UNK

REACTIONS (1)
  - Therapeutic response decreased [Unknown]
